FAERS Safety Report 8150305-6 (Version None)
Quarter: 2012Q1

REPORT INFORMATION
  Report Type: 
  Country: None (occurrence: None)
  Receive Date: 20120220
  Receipt Date: 20120215
  Transmission Date: 20120608
  Serious: Yes (Hospitalization, Other)
  Sender: FDA-Public Use
  Company Number: US-AMGEN-USASP2012010076

PATIENT
  Sex: Female

DRUGS (3)
  1. PROLIA [Suspect]
     Indication: PRODUCT USED FOR UNKNOWN INDICATION
  2. PREDNISONE [Concomitant]
     Dosage: 5 MG, UNK
     Dates: start: 20070101
  3. COUMADIN [Concomitant]
     Dosage: 2.5 MG, UNK
     Dates: start: 20020101

REACTIONS (5)
  - EYE INFECTION [None]
  - EYE INFLAMMATION [None]
  - HEADACHE [None]
  - GINGIVITIS [None]
  - DEAFNESS UNILATERAL [None]
